FAERS Safety Report 25095415 (Version 2)
Quarter: 2025Q1

REPORT INFORMATION
  Report Type: Spontaneous
  Country: CA (occurrence: CA)
  Receive Date: 20250319
  Receipt Date: 20250327
  Transmission Date: 20250409
  Serious: Yes (Other)
  Sender: PFIZER
  Company Number: CA-PFIZER INC-202500057622

PATIENT
  Age: 67 Year
  Sex: Female
  Weight: 75 kg

DRUGS (2)
  1. RUXIENCE [Suspect]
     Active Substance: RITUXIMAB-PVVR
     Indication: Rheumatoid arthritis
     Route: 042
     Dates: start: 20250313, end: 20250313
  2. TELMISARTAN [Concomitant]
     Active Substance: TELMISARTAN

REACTIONS (6)
  - Urticaria [Recovering/Resolving]
  - Pharyngeal swelling [Recovering/Resolving]
  - Paraesthesia oral [Recovering/Resolving]
  - Throat tightness [Recovering/Resolving]
  - Dry throat [Recovering/Resolving]
  - Pharyngeal mass [Recovering/Resolving]

NARRATIVE: CASE EVENT DATE: 20250313
